FAERS Safety Report 9474259 (Version 1)
Quarter: 2013Q3

REPORT INFORMATION
  Report Type: Report from Study
  Country: JP (occurrence: JP)
  Receive Date: 20130823
  Receipt Date: 20130823
  Transmission Date: 20140515
  Serious: Yes (Death, Life-Threatening, Hospitalization, Other)
  Sender: FDA-Public Use
  Company Number: JP-BRISTOL-MYERS SQUIBB COMPANY-19195056

PATIENT
  Age: 79 Year
  Sex: Male

DRUGS (9)
  1. PACLITAXEL [Suspect]
     Indication: NON-SMALL CELL LUNG CANCER
     Dosage: INTRPD:16JUN2013
     Route: 041
     Dates: start: 20130610, end: 2013
  2. CARBOPLATIN [Suspect]
     Indication: NON-SMALL CELL LUNG CANCER
  3. AMG 706 [Suspect]
     Indication: NON-SMALL CELL LUNG CANCER
  4. BLINDED: PLACEBO [Suspect]
     Indication: NON-SMALL CELL LUNG CANCER
  5. VILDAGLIPTIN [Concomitant]
     Indication: DIABETES MELLITUS
     Route: 048
     Dates: start: 20130601, end: 20130615
  6. HYZAAR [Concomitant]
     Indication: HYPERTENSION
     Dosage: 1DF:1 TAB
     Route: 048
     Dates: end: 20130616
  7. TAKEPRON [Concomitant]
     Indication: GASTRITIS PROPHYLAXIS
     Route: 048
     Dates: end: 20130616
  8. DEPAS [Concomitant]
     Indication: INSOMNIA
     Route: 048
     Dates: end: 20130616
  9. MOBIC [Concomitant]
     Indication: PERIPHERAL SENSORY NEUROPATHY
     Route: 048
     Dates: start: 20130614, end: 20130618

REACTIONS (6)
  - Cardiac failure congestive [Fatal]
  - Ileus [Recovering/Resolving]
  - Febrile neutropenia [Recovered/Resolved]
  - Platelet count decreased [Recovering/Resolving]
  - Sepsis [Recovering/Resolving]
  - Disseminated intravascular coagulation [Recovering/Resolving]
